FAERS Safety Report 8232514-0 (Version None)
Quarter: 2012Q1

REPORT INFORMATION
  Report Type: 
  Country: None (occurrence: None)
  Receive Date: 20120320
  Receipt Date: 20120308
  Transmission Date: 20120608
  Serious: Yes (Hospitalization, Other)
  Sender: FDA-Public Use
  Company Number: 2012SP013105

PATIENT
  Sex: Female

DRUGS (3)
  1. PEG-INTRON [Suspect]
     Indication: HEPATITIS C
     Dosage: UNK
     Dates: start: 20111220, end: 20120222
  2. VICTRELIS [Suspect]
     Indication: HEPATITIS C
     Dosage: UNK
     Dates: start: 20120117, end: 20120222
  3. RIBAVIRIN [Suspect]
     Indication: HEPATITIS C
     Dosage: UNK
     Dates: start: 20111220, end: 20120222

REACTIONS (16)
  - ASTHENIA [None]
  - DYSPHAGIA [None]
  - CONTUSION [None]
  - EMOTIONAL DISORDER [None]
  - ANGER [None]
  - PAROSMIA [None]
  - BLOOD POTASSIUM DECREASED [None]
  - IMPAIRED SELF-CARE [None]
  - WEIGHT DECREASED [None]
  - DRUG INEFFECTIVE [None]
  - HYPOPHAGIA [None]
  - ABASIA [None]
  - VOMITING [None]
  - DRY MOUTH [None]
  - FULL BLOOD COUNT DECREASED [None]
  - ANXIETY [None]
